FAERS Safety Report 5591437-6 (Version None)
Quarter: 2008Q1

REPORT INFORMATION
  Report Type: 
  Country: None (occurrence: None)
  Receive Date: 20080111
  Receipt Date: 20080111
  Transmission Date: 20080703
  Serious: Yes (Other)
  Sender: FDA-Public Use
  Company Number: None

PATIENT
  Age: 55 Year
  Sex: Female
  Weight: 73.0291 kg

DRUGS (1)
  1. ERBITUX [Suspect]
     Indication: COLON CANCER
     Dosage: 676MG  WEEKLY  IV
     Route: 042
     Dates: start: 20070109, end: 20080109

REACTIONS (4)
  - BACK PAIN [None]
  - DYSPNOEA [None]
  - ERYTHEMA [None]
  - NAUSEA [None]
